FAERS Safety Report 20699925 (Version 3)
Quarter: 2022Q2

REPORT INFORMATION
  Report Type: Spontaneous
  Country: PL (occurrence: PL)
  Receive Date: 20220412
  Receipt Date: 20220426
  Transmission Date: 20220721
  Serious: Yes (Hospitalization, Other)
  Sender: FDA-Public Use
  Company Number: PL-GLAXOSMITHKLINE-PLCH2022EME009716

PATIENT
  Age: 70 Year
  Sex: Male

DRUGS (23)
  1. INDAPAMIDE [Interacting]
     Active Substance: INDAPAMIDE
     Indication: Product used for unknown indication
     Dosage: 1.5 MILLIGRAM, QD
  2. INDAPAMIDE [Interacting]
     Active Substance: INDAPAMIDE
     Dosage: 1 DOSAGE FORM, QD, 1.5 MILLIGRAM, QD
  3. ASPIRIN [Interacting]
     Active Substance: ASPIRIN
     Indication: Product used for unknown indication
     Dosage: 75 MILLIGRAM, QD
  4. ASPIRIN [Interacting]
     Active Substance: ASPIRIN
     Dosage: 1 DOSAGE FORM, QD, 75 MG, QD
  5. DICLOFENAC [Interacting]
     Active Substance: DICLOFENAC
     Indication: Pain
     Dosage: UNK, IN THE FORM OF TWO DIFFERENT PREPARATIONS
  6. DULOXETINE [Interacting]
     Active Substance: DULOXETINE
     Indication: Spinal pain
     Dosage: 30 MILLIGRAM, QD
  7. DULOXETINE [Interacting]
     Active Substance: DULOXETINE
     Dosage: 1 DOSAGE FORM, QD, 30 MILLIGRAM, QD
  8. DULOXETINE [Interacting]
     Active Substance: DULOXETINE
     Dosage: UNK
  9. CELECOXIB [Interacting]
     Active Substance: CELECOXIB
     Indication: Product used for unknown indication
     Dosage: UNK, IN THE FORM OF TWO DIFFERENT PREPARATIONS
  10. NIMESULIDE [Interacting]
     Active Substance: NIMESULIDE
     Indication: Product used for unknown indication
     Dosage: UNK, IN THE FORM OF TWO DIFFERENT PREPARATIONS
  11. KETOPROFEN [Interacting]
     Active Substance: KETOPROFEN
     Indication: Product used for unknown indication
     Dosage: UNK, IN THE FORM OF TWO DIFFERENT PREPARATIONS
  12. PANTOPRAZOLE [Concomitant]
     Active Substance: PANTOPRAZOLE
     Dosage: 20 MILLIGRAM, QD
  13. PANTOPRAZOLE [Concomitant]
     Active Substance: PANTOPRAZOLE
     Dosage: 1 DOSAGE FORM, QD, 20 MILLIGRAM, QD
  14. GABAPENTIN [Concomitant]
     Active Substance: GABAPENTIN
     Dosage: 200 MILLIGRAM, QD (100 MILLIGRAM, BID)
  15. GABAPENTIN [Concomitant]
     Active Substance: GABAPENTIN
     Dosage: 1 DOSAGE FORM, BID, 100 MILLIGRAM, BID
  16. ATORVASTATIN [Concomitant]
     Active Substance: ATORVASTATIN
     Dosage: 80 MILLIGRAM, QD
  17. ATORVASTATIN [Concomitant]
     Active Substance: ATORVASTATIN
     Dosage: 1 DOSAGE FORM, QD, 80 MILLIGRAM, QD
  18. NEBIVOLOL [Concomitant]
     Active Substance: NEBIVOLOL
     Dosage: 5 MILLIGRAM, QD
  19. NEBIVOLOL [Concomitant]
     Active Substance: NEBIVOLOL
     Dosage: 1 DOSAGE FORM, QD, 5 MILLIGRAM, QD
  20. METFORMIN [Concomitant]
     Active Substance: METFORMIN HYDROCHLORIDE
     Indication: Type 2 diabetes mellitus
     Dosage: 2550 MILLIGRAM, QD (850 MILLIGRAM, TID)
  21. METFORMIN [Concomitant]
     Active Substance: METFORMIN HYDROCHLORIDE
     Dosage: 1 DOSAGE FORM, Q8H, AT MEALS
  22. VALSARTAN [Concomitant]
     Active Substance: VALSARTAN
     Dosage: 80 MILLIGRAM, QD
  23. VALSARTAN [Concomitant]
     Active Substance: VALSARTAN
     Dosage: 1 DOSAGE FORM, QD, 80 MILLIGRAM, QD

REACTIONS (5)
  - Urinary retention [Recovered/Resolved]
  - Dysuria [Recovered/Resolved]
  - Hyponatraemia [Recovered/Resolved]
  - Electrolyte imbalance [Recovered/Resolved]
  - Drug interaction [Recovered/Resolved]
